FAERS Safety Report 4690990-4 (Version None)
Quarter: 2005Q2

REPORT INFORMATION
  Report Type: 
  Country: None (occurrence: None)
  Receive Date: 20050610
  Receipt Date: 20050601
  Transmission Date: 20051028
  Serious: Yes (Other)
  Sender: FDA-Public Use
  Company Number: 2005083602

PATIENT

DRUGS (1)
  1. PREGABALIN                                        (PREGABALIN) [Suspect]
     Indication: DIABETIC NEUROPATHY
     Dosage: ORAL
     Route: 048

REACTIONS (1)
  - HEPATITIS TOXIC [None]
